FAERS Safety Report 20573130 (Version 1)
Quarter: 2022Q1

REPORT INFORMATION
  Report Type: Report from Study
  Country: CA (occurrence: CA)
  Receive Date: 20220309
  Receipt Date: 20220309
  Transmission Date: 20220424
  Serious: Yes (Other)
  Sender: FDA-Public Use
  Company Number: CA-BAUSCH-BL-2022-006198

PATIENT
  Age: 59 Year
  Sex: Male

DRUGS (2)
  1. DEXAMETHASONE [Suspect]
     Active Substance: DEXAMETHASONE
     Indication: Plasma cell myeloma
     Route: 065
  2. IXAZOMIB [Suspect]
     Active Substance: IXAZOMIB
     Indication: Plasma cell myeloma
     Route: 048

REACTIONS (9)
  - Arthralgia [Unknown]
  - Chills [Unknown]
  - Fatigue [Unknown]
  - Nasopharyngitis [Unknown]
  - Neuralgia [Unknown]
  - Plasma cell myeloma [Unknown]
  - Swelling of eyelid [Unknown]
  - Eye infection [Unknown]
  - Off label use [Unknown]
